FAERS Safety Report 12426327 (Version 1)
Quarter: 2016Q2

REPORT INFORMATION
  Report Type: Spontaneous
  Country: US (occurrence: US)
  Receive Date: 20160601
  Receipt Date: 20160601
  Transmission Date: 20160815
  Serious: Yes (Hospitalization, Other)
  Sender: FDA-Public Use
  Company Number: US-TEVA-662967USA

PATIENT
  Sex: Female
  Weight: 55.84 kg

DRUGS (1)
  1. CEFALEXIN [Suspect]
     Active Substance: CEPHALEXIN
     Indication: PSORIASIS
     Route: 048
     Dates: start: 20160426, end: 20160511

REACTIONS (7)
  - Loss of consciousness [Unknown]
  - Rash [Not Recovered/Not Resolved]
  - Weight increased [Unknown]
  - Inflammation [Not Recovered/Not Resolved]
  - Hypersomnia [Unknown]
  - Generalised tonic-clonic seizure [Unknown]
  - Erythema [Not Recovered/Not Resolved]
